FAERS Safety Report 16833324 (Version 1)
Quarter: 2019Q4

REPORT INFORMATION
  Report Type: Spontaneous
  Country: US (occurrence: US)
  Receive Date: 20190920
  Receipt Date: 20190920
  Transmission Date: 20200122
  Serious: Yes (Hospitalization)
  Sender: FDA-Public Use
  Company Number: None

PATIENT
  Age: 65 Year
  Sex: Male

DRUGS (12)
  1. ALFUZOSIN [Concomitant]
     Active Substance: ALFUZOSIN
  2. AMOX/K CLAV [Concomitant]
     Active Substance: AMOXICILLIN\CLAVULANATE POTASSIUM
  3. METHYLPRED [Concomitant]
     Active Substance: METHYLPREDNISOLONE
  4. LOSARTAN. [Concomitant]
     Active Substance: LOSARTAN
  5. HUMIRA [Suspect]
     Active Substance: ADALIMUMAB
     Indication: COLITIS
     Dosage: ?          OTHER FREQUENCY:EVERY 2 WEEKS;?
     Route: 058
     Dates: start: 20190731
  6. OXYCODONE AND ACETAMINOPHEN [Concomitant]
     Active Substance: ACETAMINOPHEN\OXYCODONE HYDROCHLORIDE
  7. ALPRAZOLAM. [Concomitant]
     Active Substance: ALPRAZOLAM
  8. SODIUM CHLOR [Concomitant]
     Active Substance: SODIUM CHLORIDE
  9. CEFUROXIME. [Concomitant]
     Active Substance: CEFUROXIME
  10. BUDESONIDE. [Concomitant]
     Active Substance: BUDESONIDE
  11. MELOXICAM. [Concomitant]
     Active Substance: MELOXICAM
  12. FOLIC ACID. [Concomitant]
     Active Substance: FOLIC ACID

REACTIONS (1)
  - Sinus operation [None]
